FAERS Safety Report 5738971-3 (Version None)
Quarter: 2008Q2

REPORT INFORMATION
  Report Type: 
  Country: None (occurrence: None)
  Receive Date: 20080515
  Receipt Date: 20080508
  Transmission Date: 20081010
  Serious: Yes (Hospitalization)
  Sender: FDA-Public Use
  Company Number: US-ASTRAZENECA-2008UW09497

PATIENT
  Age: 38 Year
  Sex: Female
  Weight: 88 kg

DRUGS (6)
  1. SYMBICORT [Suspect]
     Indication: CHRONIC OBSTRUCTIVE PULMONARY DISEASE
     Dosage: 160/4.5 UG
     Route: 055
     Dates: start: 20080301, end: 20080101
  2. SYMBICORT [Suspect]
     Dosage: 160/4.5 UG
     Route: 055
     Dates: start: 20080101
  3. ALBUTEROL [Concomitant]
  4. CHANTIX [Concomitant]
  5. PREDNISONE TAB [Concomitant]
  6. SINGULAIR [Concomitant]

REACTIONS (2)
  - CHRONIC OBSTRUCTIVE PULMONARY DISEASE [None]
  - TREMOR [None]
